FAERS Safety Report 16139083 (Version 1)
Quarter: 2019Q1

REPORT INFORMATION
  Report Type: Spontaneous
  Country: US (occurrence: US)
  Receive Date: 20190226
  Receipt Date: 20190226
  Transmission Date: 20190418
  Serious: No
  Sender: FDA-Public Use
  Company Number: None

PATIENT
  Age: 64 Year
  Sex: Female
  Weight: 68.04 kg

DRUGS (7)
  1. FORTEO [Suspect]
     Active Substance: TERIPARATIDE
     Indication: RHEUMATOID ARTHRITIS
     Dosage: ?          OTHER STRENGTH:600/2.4 UG/ML;?
     Route: 058
     Dates: start: 201805
  2. FORTEO [Suspect]
     Active Substance: TERIPARATIDE
     Indication: GASTROOESOPHAGEAL REFLUX DISEASE
     Dosage: ?          OTHER STRENGTH:600/2.4 UG/ML;?
     Route: 058
     Dates: start: 201805
  3. FORTEO [Suspect]
     Active Substance: TERIPARATIDE
     Indication: OSTEOPOROSIS
  4. FORTEO [Suspect]
     Active Substance: TERIPARATIDE
     Indication: RHEUMATOID ARTHRITIS
  5. FORTEO [Suspect]
     Active Substance: TERIPARATIDE
     Indication: OSTEOPOROSIS
     Dosage: ?          OTHER STRENGTH:600/2.4 UG/ML;?
     Route: 058
     Dates: start: 201805
  6. FORTEO [Suspect]
     Active Substance: TERIPARATIDE
     Indication: GASTROOESOPHAGEAL REFLUX DISEASE
  7. FORTEO [Suspect]
     Active Substance: TERIPARATIDE
     Indication: FIBROUS DYSPLASIA OF BONE

REACTIONS (1)
  - Rash generalised [None]
